FAERS Safety Report 7220609-X (Version None)
Quarter: 2011Q1

REPORT INFORMATION
  Report Type: 
  Country: None (occurrence: None)
  Receive Date: 20110111
  Receipt Date: 20110105
  Transmission Date: 20110831
  Serious: Yes (Hospitalization)
  Sender: FDA-Public Use
  Company Number: JP-PFIZER INC-2011003150

PATIENT
  Age: 32 Year
  Sex: Female

DRUGS (4)
  1. LOXONIN [Concomitant]
     Dosage: UNK
     Route: 048
     Dates: start: 20101230, end: 20101231
  2. ZITHROMAX [Suspect]
     Indication: RESPIRATORY TRACT INFECTION
     Dosage: 500 MG/DAY
     Route: 048
     Dates: start: 20101230, end: 20101231
  3. IMIPENEM AND CILASTATIN [Concomitant]
     Dosage: UNK
     Dates: start: 20110101
  4. PL GRAN. [Concomitant]
     Dosage: UNK
     Route: 048
     Dates: start: 20101230, end: 20101231

REACTIONS (4)
  - PLATELET COUNT DECREASED [None]
  - LOSS OF CONSCIOUSNESS [None]
  - WHITE BLOOD CELL COUNT DECREASED [None]
  - DELIRIUM [None]
